FAERS Safety Report 4523720-7 (Version None)
Quarter: 2004Q4

REPORT INFORMATION
  Report Type: 
  Country: None (occurrence: None)
  Receive Date: 20041101
  Receipt Date: 20031023
  Transmission Date: 20050328
  Serious: Yes (Hospitalization, Other)
  Sender: FDA-Public Use
  Company Number: HQWYE489124OCT03

PATIENT
  Age: 46 Year
  Sex: Female
  Weight: 49.03 kg

DRUGS (4)
  1. PREMARIN [Suspect]
     Indication: HOT FLUSH
     Dosage: ORAL
     Route: 048
     Dates: start: 19990901, end: 20020401
  2. PREMPRO [Suspect]
     Indication: HOT FLUSH
     Dosage: ORAL
     Route: 048
     Dates: start: 19990201, end: 19990901
  3. PROGESTERONE [Suspect]
     Indication: HOT FLUSH
     Dosage: ORAL
     Route: 048
     Dates: start: 19990901
  4. ALBUTEROL [Concomitant]

REACTIONS (2)
  - BREAST CANCER STAGE II [None]
  - METRORRHAGIA [None]
